FAERS Safety Report 25269977 (Version 1)
Quarter: 2025Q2

REPORT INFORMATION
  Report Type: Other
  Country: CA (occurrence: CA)
  Receive Date: 20250505
  Receipt Date: 20250505
  Transmission Date: 20250717
  Serious: Yes (Hospitalization, Other)
  Sender: PFIZER
  Company Number: CA-PFIZER INC-202500092922

PATIENT
  Age: 76 Year
  Sex: Male

DRUGS (13)
  1. LORAZEPAM [Suspect]
     Active Substance: LORAZEPAM
     Indication: Dementia with Lewy bodies
     Route: 065
  2. CITALOPRAM HYDROBROMIDE [Suspect]
     Active Substance: CITALOPRAM HYDROBROMIDE
     Indication: Dementia with Lewy bodies
     Dosage: 20 MG, 1X/DAY
  3. CLONAZEPAM [Suspect]
     Active Substance: CLONAZEPAM
     Indication: Dementia with Lewy bodies
     Dosage: 0.5 MG, 1X/DAY
  4. LOXAPINE [Suspect]
     Active Substance: LOXAPINE
     Indication: Dementia with Lewy bodies
  5. OLANZAPINE [Suspect]
     Active Substance: OLANZAPINE
     Indication: Dementia
     Dosage: 2.5 MG, 1X/DAY
  6. QUETIAPINE [Suspect]
     Active Substance: QUETIAPINE
     Indication: Post-traumatic stress disorder
  7. QUETIAPINE [Suspect]
     Active Substance: QUETIAPINE
     Indication: Dementia with Lewy bodies
     Dosage: 12.5 MG, 1X/DAY
  8. QUETIAPINE [Suspect]
     Active Substance: QUETIAPINE
  9. QUETIAPINE [Suspect]
     Active Substance: QUETIAPINE
     Dosage: 100 MG, 3X/DAY (EVERY 8 HOURS)
  10. RISPERDAL [Suspect]
     Active Substance: RISPERIDONE
     Indication: Dementia
  11. RISPERDAL [Suspect]
     Active Substance: RISPERIDONE
     Dosage: 0.25 MG, 2X/DAY
  12. RIVASTIGMINE [Suspect]
     Active Substance: RIVASTIGMINE
     Indication: Dementia with Lewy bodies
  13. RIVASTIGMINE [Suspect]
     Active Substance: RIVASTIGMINE
     Dosage: 1.5 MG, 2X/DAY

REACTIONS (2)
  - Off label use [Recovered/Resolved]
  - Parkinsonism [Recovered/Resolved]
